FAERS Safety Report 9238956 (Version 2)
Quarter: 2013Q2

REPORT INFORMATION
  Report Type: Spontaneous
  Country: ZA (occurrence: ZA)
  Receive Date: 20130418
  Receipt Date: 20130422
  Transmission Date: 20140414
  Serious: Yes (Death)
  Sender: FDA-Public Use
  Company Number: ZA-ROCHE-1215570

PATIENT
  Sex: Female
  Weight: 71 kg

DRUGS (1)
  1. MIRCERA [Suspect]
     Indication: RENAL FAILURE CHRONIC
     Route: 058
     Dates: start: 20110114, end: 20130414

REACTIONS (2)
  - Cerebrovascular accident [Fatal]
  - Disease progression [Fatal]
